FAERS Safety Report 7245627-7 (Version None)
Quarter: 2011Q1

REPORT INFORMATION
  Report Type: 
  Country: None (occurrence: None)
  Receive Date: 20110126
  Receipt Date: 20110124
  Transmission Date: 20110831
  Serious: Yes (Death, Hospitalization, Other)
  Sender: FDA-Public Use
  Company Number: US-B.I. PHARMACEUTICALS,INC./RIDGEFIELD-2010-BP-12030BP

PATIENT
  Sex: Female

DRUGS (3)
  1. AGGRENOX [Suspect]
     Indication: TRANSIENT ISCHAEMIC ATTACK
     Dosage: DAILY DOSE: 50MG/400MG
     Route: 048
     Dates: start: 20090101, end: 20100921
  2. SYNTHROID [Concomitant]
     Indication: HYPOTHYROIDISM
  3. DIOVAN [Concomitant]
     Indication: HYPERTENSION

REACTIONS (6)
  - RECTAL HAEMORRHAGE [None]
  - PERITONITIS [None]
  - INTESTINAL PERFORATION [None]
  - BOWEL MOVEMENT IRREGULARITY [None]
  - DISSEMINATED INTRAVASCULAR COAGULATION [None]
  - SHOCK [None]
